FAERS Safety Report 9877229 (Version 3)
Quarter: 2017Q3

REPORT INFORMATION
  Report Type: Spontaneous
  Country: US (occurrence: US)
  Receive Date: 20140206
  Receipt Date: 20170918
  Transmission Date: 20171128
  Serious: Yes (Hospitalization, Other)
  Sender: FDA-Public Use
  Company Number: US-009507513-1402USA002096

PATIENT
  Sex: Female

DRUGS (1)
  1. NUVARING [Suspect]
     Active Substance: ETHINYL ESTRADIOL\ETONOGESTREL
     Indication: PRODUCT USED FOR UNKNOWN INDICATION
     Dosage: UNK
     Route: 067

REACTIONS (7)
  - Hypercoagulation [Unknown]
  - Stent placement [Unknown]
  - Deep vein thrombosis [Unknown]
  - Thrombectomy [Unknown]
  - Paget-Schroetter syndrome [Unknown]
  - Angioplasty [Unknown]
  - Hepatic cyst [Unknown]

NARRATIVE: CASE EVENT DATE: 201011
